FAERS Safety Report 17002044 (Version 1)
Quarter: 2019Q4

REPORT INFORMATION
  Report Type: Spontaneous
  Country: US (occurrence: US)
  Receive Date: 20191106
  Receipt Date: 20191106
  Transmission Date: 20200122
  Serious: No
  Sender: FDA-Public Use
  Company Number: US-IGSA-SR10009324

PATIENT
  Age: 71 Year
  Sex: Male

DRUGS (23)
  1. HCTZ [Concomitant]
     Active Substance: HYDROCHLOROTHIAZIDE
  2. DIGESTIVE [Concomitant]
     Indication: GASTROOESOPHAGEAL REFLUX DISEASE
  3. LANTUS [Concomitant]
     Active Substance: INSULIN GLARGINE
  4. VITAMIN B12 [Concomitant]
     Active Substance: CYANOCOBALAMIN
  5. GAMUNEX-C [Suspect]
     Active Substance: HUMAN IMMUNOGLOBULIN G
     Dosage: UNK
  6. ERYTHROMYCIN. [Concomitant]
     Active Substance: ERYTHROMYCIN
     Indication: PROPHYLAXIS
     Dosage: UNK UNK, QD
  7. BUPROPION. [Concomitant]
     Active Substance: BUPROPION
  8. FUROSEMIDE. [Concomitant]
     Active Substance: FUROSEMIDE
  9. GABAPENTIN. [Concomitant]
     Active Substance: GABAPENTIN
  10. VITAMIN B6 [Concomitant]
     Active Substance: PYRIDOXINE HYDROCHLORIDE
  11. SORIATANE [Concomitant]
     Active Substance: ACITRETIN
     Indication: PSORIASIS
  12. LOSARTAN. [Concomitant]
     Active Substance: LOSARTAN
  13. MELANEX                            /00205801/ [Concomitant]
  14. METFORMIN [Concomitant]
     Active Substance: METFORMIN HYDROCHLORIDE
  15. GAMUNEX-C [Suspect]
     Active Substance: HUMAN IMMUNOGLOBULIN G
     Dosage: 80 G, UNK
     Route: 042
     Dates: start: 1981
  16. NEXIUM [Concomitant]
     Active Substance: ESOMEPRAZOLE MAGNESIUM
  17. GAMUNEX-C [Suspect]
     Active Substance: HUMAN IMMUNOGLOBULIN G
     Indication: IMMUNODEFICIENCY COMMON VARIABLE
     Dosage: 80 G, UNK
     Route: 042
     Dates: start: 20191023, end: 20191023
  18. MELATONIN [Concomitant]
     Active Substance: MELATONIN
  19. NOVOLOG [Concomitant]
     Active Substance: INSULIN ASPART
  20. CHOLESTEROL [Concomitant]
     Active Substance: CHOLESTEROL
  21. TAMULOSIN [Concomitant]
     Active Substance: TAMSULOSIN
  22. PAXIL [Concomitant]
     Active Substance: PAROXETINE HYDROCHLORIDE
  23. MAGNESIUM GLUCONATE [Concomitant]
     Active Substance: MAGNESIUM GLUCONATE

REACTIONS (4)
  - Pruritus [Recovered/Resolved]
  - Administration site reaction [Recovered/Resolved]
  - Rash macular [Recovered/Resolved]
  - Rash [Recovered/Resolved]

NARRATIVE: CASE EVENT DATE: 20191023
